FAERS Safety Report 10241152 (Version 3)
Quarter: 2014Q3

REPORT INFORMATION
  Report Type: Spontaneous
  Country: US (occurrence: US)
  Receive Date: 20140617
  Receipt Date: 20140820
  Transmission Date: 20150326
  Serious: No
  Sender: FDA-Public Use
  Company Number: US-PFIZER INC-2014164623

PATIENT
  Age: 68 Year
  Sex: Female
  Weight: 71.2 kg

DRUGS (22)
  1. OMNARIS [Concomitant]
     Active Substance: CICLESONIDE
     Indication: COUGH
     Dosage: 50 UG, 2 PUFFS IN EACH NOSTRIL ONCE A DAY
     Route: 045
  2. PROCHLORPERAZINE. [Concomitant]
     Active Substance: PROCHLORPERAZINE
     Dosage: 5 MG, AS NEEDED
  3. MELOXICAM. [Concomitant]
     Active Substance: MELOXICAM
     Indication: BACK PAIN
     Dosage: 7.5 MG, TWICE A DAY
     Route: 048
  4. CETIRIZINE HCL [Concomitant]
     Active Substance: CETIRIZINE HYDROCHLORIDE
     Dosage: 10 MG, 1X/DAY
     Dates: end: 20140513
  5. PRILOSEC [Concomitant]
     Active Substance: OMEPRAZOLE MAGNESIUM
     Dosage: 40 MG, 1X/DAY
  6. LYRICA [Concomitant]
     Active Substance: PREGABALIN
     Indication: BACK PAIN
     Dosage: 75 MG, 2X/DAY
  7. WAL-TUSSIN [Concomitant]
     Dosage: UNK, PRN
  8. IBUPROFEN. [Concomitant]
     Active Substance: IBUPROFEN
     Dosage: 800 MG, 1 TAB RARE USE
  9. OXYCODONE HYDROCHLORIDE. [Concomitant]
     Active Substance: OXYCODONE HYDROCHLORIDE
     Indication: BACK PAIN
     Dosage: 5 MG, AS NEEDED EVERY 6 HRS
     Route: 048
  10. PERI-COLACE [Concomitant]
     Active Substance: CASANTHRANOL\DOCUSATE SODIUM
     Indication: CONSTIPATION
     Dosage: CASANTHRANOL 8.6 MG/ DOCUSATE SODIUM 50MG, IN THE EVENING AS NEEDED ONCE A DAY
  11. MUCINEX D [Concomitant]
     Active Substance: GUAIFENESIN\PSEUDOEPHEDRINE HYDROCHLORIDE
     Dosage: GUAIFENESIN 600MG/ PSEUDOEPHEDRINE 60MG, 1 TABLET AS NEEDED TWICE A DAY
  12. DULCOLAX [Concomitant]
     Active Substance: BISACODYL OR DOCUSATE SODIUM
     Indication: CONSTIPATION
     Dosage: 10 MG, 1 SUPPOSITORY AS NEEDED ONCE A DAY
     Dates: end: 20140626
  13. ESCITALOPRAM OXALATE. [Concomitant]
     Active Substance: ESCITALOPRAM OXALATE
     Dosage: 20 MG, 1X/DAY
  14. ZYRTEC [Concomitant]
     Active Substance: CETIRIZINE HYDROCHLORIDE
     Indication: COUGH
  15. NEURONTIN [Suspect]
     Active Substance: GABAPENTIN
     Indication: NEURALGIA
     Dosage: 75 MG, 4X/DAY
  16. NEURONTIN [Suspect]
     Active Substance: GABAPENTIN
     Indication: SLEEP DISORDER
     Dosage: 2 DF, DAILY
  17. NEURONTIN [Suspect]
     Active Substance: GABAPENTIN
     Dosage: 400MG 4X/DAY, IN A COMBINATION OF 300MG AND 100MG, ADDITIONALLY 300MG AT NIGHT
  18. GABAPENTIN. [Suspect]
     Active Substance: GABAPENTIN
     Indication: BACK PAIN
     Dosage: UNK
  19. LYRICA [Concomitant]
     Active Substance: PREGABALIN
     Dosage: 100 MG, TID
     Route: 048
  20. HYDROCODONE BIT/APAP [Concomitant]
     Active Substance: ACETAMINOPHEN\HYDROCODONE BITARTRATE
     Dosage: HYDROCODONE BITARTRATE 5MG/ PARACETAMOL 325MG, AS NEEDED OCCASIONALLY
  21. ZOLPIDEM TARTRATE. [Concomitant]
     Active Substance: ZOLPIDEM TARTRATE
     Dosage: 10 MG, AT BEDTIME AS NEEDED ONCE A DAY,
  22. ZYRTEC [Concomitant]
     Active Substance: CETIRIZINE HYDROCHLORIDE
     Indication: HYPERSENSITIVITY
     Dosage: 10 MG, 1X/DAY

REACTIONS (4)
  - Joint swelling [Unknown]
  - Peripheral swelling [Recovered/Resolved]
  - Somnolence [Unknown]
  - Off label use [Unknown]
